FAERS Safety Report 20698877 (Version 1)
Quarter: 2022Q2

REPORT INFORMATION
  Report Type: Spontaneous
  Country: IR (occurrence: IR)
  Receive Date: 20220412
  Receipt Date: 20220412
  Transmission Date: 20220721
  Serious: Yes (Death, Hospitalization, Other)
  Sender: FDA-Public Use
  Company Number: IR-ALKEM LABORATORIES LIMITED-IR-ALKEM-2022-03148

PATIENT
  Age: 4 Year
  Sex: Female

DRUGS (1)
  1. METHADONE HYDROCHLORIDE [Suspect]
     Active Substance: METHADONE HYDROCHLORIDE
     Indication: Product used for unknown indication
     Dosage: UNK
     Route: 065

REACTIONS (6)
  - Stress cardiomyopathy [Fatal]
  - Accidental exposure to product by child [Fatal]
  - Cardiac failure [Fatal]
  - Respiratory arrest [Fatal]
  - Cerebellar infarction [Fatal]
  - Brain oedema [Fatal]
